FAERS Safety Report 7291245-4 (Version None)
Quarter: 2011Q1

REPORT INFORMATION
  Report Type: 
  Country: None (occurrence: None)
  Receive Date: 20110214
  Receipt Date: 20110204
  Transmission Date: 20110831
  Serious: Yes (Hospitalization)
  Sender: FDA-Public Use
  Company Number: JP-PFIZER INC-2011032339

PATIENT
  Age: 75 Year
  Sex: Female
  Weight: 40 kg

DRUGS (1)
  1. LIPITOR [Suspect]
     Route: 048

REACTIONS (1)
  - LIVER DISORDER [None]
